FAERS Safety Report 12501171 (Version 1)
Quarter: 2016Q2

REPORT INFORMATION
  Report Type: Spontaneous
  Country: US (occurrence: US)
  Receive Date: 20160627
  Receipt Date: 20160627
  Transmission Date: 20160815
  Serious: Yes (Other)
  Sender: FDA-Public Use
  Company Number: US-LPDUSPRD-20160551

PATIENT
  Age: 40 Year
  Sex: Female
  Weight: 45 kg

DRUGS (2)
  1. EPINEPHRINE INJECTION, USP (1071-25) [Suspect]
     Active Substance: EPINEPHRINE
     Dosage: 30 ML (1:400,000)
     Route: 051
  2. BUPIVICAINE [Suspect]
     Active Substance: BUPIVACAINE
     Dosage: 30 ML (0.5%)
     Route: 051

REACTIONS (4)
  - Hypotension [Unknown]
  - Bradycardia [Unknown]
  - Heart rate decreased [Unknown]
  - Dizziness [Unknown]
